FAERS Safety Report 6102690-4 (Version None)
Quarter: 2009Q1

REPORT INFORMATION
  Report Type: 
  Country: None (occurrence: None)
  Receive Date: 20090304
  Receipt Date: 20090116
  Transmission Date: 20090719
  Serious: No
  Sender: FDA-Public Use
  Company Number: A0764848A

PATIENT
  Age: 69 Year
  Sex: Female
  Weight: 96.2 kg

DRUGS (3)
  1. REQUIP [Suspect]
     Indication: RESTLESS LEGS SYNDROME
     Route: 065
  2. LUNESTA [Suspect]
     Indication: INSOMNIA
     Dosage: 3MG PER DAY
     Route: 048
     Dates: start: 20081217, end: 20081218
  3. NEURONTIN [Concomitant]

REACTIONS (1)
  - DRUG INEFFECTIVE [None]
